FAERS Safety Report 6931107-2 (Version None)
Quarter: 2010Q3

REPORT INFORMATION
  Report Type: 
  Country: None (occurrence: None)
  Receive Date: 20100818
  Receipt Date: 20100811
  Transmission Date: 20110219
  Serious: Yes (Death, Hospitalization)
  Sender: FDA-Public Use
  Company Number: GB-ABBOTT-10P-167-0661338-00

PATIENT
  Sex: Male
  Weight: 68 kg

DRUGS (1)
  1. HUMIRA [Suspect]
     Indication: PRODUCT USED FOR UNKNOWN INDICATION
     Dosage: 2 INJECTIONS
     Dates: start: 20090801, end: 20090822

REACTIONS (5)
  - ANKYLOSING SPONDYLITIS [None]
  - DYSPNOEA [None]
  - MALAISE [None]
  - PNEUMONIA [None]
  - RESPIRATORY FAILURE [None]
